FAERS Safety Report 5607064-8 (Version None)
Quarter: 2008Q1

REPORT INFORMATION
  Report Type: 
  Country: None (occurrence: None)
  Receive Date: 20080129
  Receipt Date: 20080117
  Transmission Date: 20080703
  Serious: Yes (Other)
  Sender: FDA-Public Use
  Company Number: US-PFIZER INC-2007104715

PATIENT
  Age: 28 Year
  Sex: Female
  Weight: 63.5 kg

DRUGS (7)
  1. LYRICA [Suspect]
     Indication: FIBROMYALGIA
     Dates: start: 20071115, end: 20071118
  2. LYRICA [Suspect]
     Indication: GENERALISED ANXIETY DISORDER
  3. BUPRENORPHINE HYDROCHLORIDE/NALOXONE HYDROCHLORIDE [Concomitant]
  4. LEXAPRO [Concomitant]
  5. FLEXERIL [Concomitant]
  6. ADVAIR DISKUS 100/50 [Concomitant]
  7. MONTELUKAST SODIUM [Concomitant]

REACTIONS (3)
  - FALL [None]
  - MUSCULAR WEAKNESS [None]
  - MYALGIA [None]
